FAERS Safety Report 5076445-6 (Version None)
Quarter: 2006Q3

REPORT INFORMATION
  Report Type: 
  Country: None (occurrence: None)
  Receive Date: 20060810
  Receipt Date: 20060802
  Transmission Date: 20061208
  Serious: Yes (Other)
  Sender: FDA-Public Use
  Company Number: US-BAYER-200613262BCC

PATIENT
  Age: 54 Year
  Sex: Male
  Weight: 93 kg

DRUGS (6)
  1. ASPIRIN [Suspect]
     Indication: PROPHYLAXIS
     Dosage: TOTAL DAILY DOSE: 81 MG  UNIT DOSE: 81 MG
     Route: 048
     Dates: start: 20040101
  2. GENUINE BAYER TABLETS [Suspect]
     Indication: ARTHRITIS
     Dosage: TOTAL DAILY DOSE: 325 MG  UNIT DOSE: 325 MG
     Route: 048
     Dates: start: 20050101
  3. PLAVIX [Concomitant]
  4. LIPITOR [Concomitant]
  5. TOPROL-XL [Concomitant]
  6. DILANTIN [Concomitant]

REACTIONS (2)
  - DYSPHONIA [None]
  - LOSS OF CONSCIOUSNESS [None]
